FAERS Safety Report 9542418 (Version 1)
Quarter: 2013Q3

REPORT INFORMATION
  Report Type: Spontaneous
  Country: IN (occurrence: IN)
  Receive Date: 20130923
  Receipt Date: 20130923
  Transmission Date: 20140515
  Serious: Yes (Other)
  Sender: FDA-Public Use
  Company Number: IN-PFIZER INC-2013268290

PATIENT
  Age: 40 Year
  Sex: Male

DRUGS (3)
  1. FLUOROURACIL [Suspect]
     Indication: ADENOCARCINOMA GASTRIC
     Dosage: CYCLIC
  2. EPIRUBICIN [Concomitant]
     Indication: ADENOCARCINOMA GASTRIC
     Dosage: CYCLIC
  3. CYCLOPHOSPHAMIDE [Concomitant]
     Indication: ADENOCARCINOMA GASTRIC
     Dosage: CYCLIC

REACTIONS (1)
  - Arteriospasm coronary [Recovered/Resolved]
